FAERS Safety Report 7126741-3 (Version None)
Quarter: 2010Q4

REPORT INFORMATION
  Report Type: 
  Country: None (occurrence: None)
  Receive Date: 20101129
  Receipt Date: 20101125
  Transmission Date: 20110411
  Serious: Yes (Death)
  Sender: FDA-Public Use
  Company Number: PHHY2010MY80109

PATIENT
  Age: 22 Year
  Sex: Female

DRUGS (2)
  1. GLIVEC [Suspect]
     Indication: CHRONIC MYELOID LEUKAEMIA
     Route: 048
  2. CHEMOTHERAPEUTICS NOS [Concomitant]

REACTIONS (2)
  - BLAST CELL CRISIS [None]
  - CANDIDA SEPSIS [None]
